FAERS Safety Report 5796884-5 (Version None)
Quarter: 2008Q2

REPORT INFORMATION
  Report Type: 
  Country: None (occurrence: None)
  Receive Date: 20080627
  Receipt Date: 20080617
  Transmission Date: 20081010
  Serious: Yes (Other)
  Sender: FDA-Public Use
  Company Number: 2008MB000067

PATIENT
  Sex: Female

DRUGS (3)
  1. CEPHALEXIN [Suspect]
     Indication: PREMATURE RUPTURE OF MEMBRANES
     Dosage: 500 MG; Q6H; PO
     Route: 048
  2. ERYTHROMYCIN [Suspect]
     Indication: PREMATURE RUPTURE OF MEMBRANES
     Dosage: 250 MG; Q6H; PARN, 250 MG; Q6H; PO
  3. CEFAZOLIN [Suspect]
     Indication: PREMATURE RUPTURE OF MEMBRANES
     Dosage: 2 GM; Q8H; PARN
     Route: 051

REACTIONS (2)
  - CHORIOAMNIONITIS [None]
  - DRUG EXPOSURE DURING PREGNANCY [None]
